FAERS Safety Report 25583400 (Version 2)
Quarter: 2025Q3

REPORT INFORMATION
  Report Type: Spontaneous
  Country: US (occurrence: US)
  Receive Date: 20250721
  Receipt Date: 20250817
  Transmission Date: 20251021
  Serious: No
  Sender: ELI LILLY AND COMPANY
  Company Number: US-ELI_LILLY_AND_COMPANY-US202507008898

PATIENT
  Age: 47 Year
  Sex: Female

DRUGS (20)
  1. ZEPBOUND [Suspect]
     Active Substance: TIRZEPATIDE
     Indication: Product used for unknown indication
     Route: 065
  2. ATENOLOL [Concomitant]
     Active Substance: ATENOLOL
     Indication: Hypertension
     Dosage: 50 MG, DAILY
  3. ATENOLOL [Concomitant]
     Active Substance: ATENOLOL
     Indication: Chest pain
  4. ATENOLOL [Concomitant]
     Active Substance: ATENOLOL
     Indication: Angina pectoris
  5. SERTRALINE [Concomitant]
     Active Substance: SERTRALINE HYDROCHLORIDE
     Indication: Depression
     Dosage: 75 MG, DAILY
  6. ROSUVASTATIN CALCIUM [Concomitant]
     Active Substance: ROSUVASTATIN CALCIUM
     Indication: Blood triglycerides increased
     Dosage: 10 MG, DAILY
  7. ROSUVASTATIN CALCIUM [Concomitant]
     Active Substance: ROSUVASTATIN CALCIUM
     Indication: Nephrolithiasis
  8. POTASSIUM CITRATE [Concomitant]
     Active Substance: POTASSIUM CITRATE
     Indication: Nephrolithiasis
     Dosage: 15 MEQ, DAILY
  9. UBRELVY [Concomitant]
     Active Substance: UBROGEPANT
     Indication: Migraine
  10. TRAMADOL [Concomitant]
     Active Substance: TRAMADOL
     Indication: Pain
  11. ULTRAM [Concomitant]
     Active Substance: TRAMADOL HYDROCHLORIDE
     Indication: Pain
  12. PEPCID [Concomitant]
     Active Substance: FAMOTIDINE
     Indication: Gastrooesophageal reflux disease
  13. DROSPIRENONE AND ETHINYL ESTRADIOL [Concomitant]
     Active Substance: DROSPIRENONE\ETHINYL ESTRADIOL
     Indication: Ovarian cyst
  14. DIAZEPAM [Concomitant]
     Active Substance: DIAZEPAM
     Indication: Anxiety
  15. DIAZEPAM [Concomitant]
     Active Substance: DIAZEPAM
  16. DIAZEPAM [Concomitant]
     Active Substance: DIAZEPAM
  17. VALIUM [Concomitant]
     Active Substance: DIAZEPAM
     Indication: Anxiety
  18. ROZEREM [Concomitant]
     Active Substance: RAMELTEON
     Indication: Insomnia
     Dosage: 8 MG, DAILY
  19. ATARAX P [HYDROXYZINE HYDROCHLORIDE] [Concomitant]
     Indication: Sleep disorder
     Dosage: 25 MG, DAILY
  20. METFORMIN [Concomitant]
     Active Substance: METFORMIN HYDROCHLORIDE
     Indication: Blood glucose increased

REACTIONS (12)
  - Cystitis interstitial [Unknown]
  - Chills [Recovered/Resolved]
  - Pyrexia [Recovered/Resolved]
  - Confusional state [Recovered/Resolved]
  - Anxiety [Unknown]
  - Tremor [Unknown]
  - Viral infection [Unknown]
  - Dysarthria [Recovered/Resolved]
  - Fatigue [Recovered/Resolved]
  - Dehydration [Unknown]
  - Diarrhoea [Unknown]
  - Abdominal pain [Unknown]

NARRATIVE: CASE EVENT DATE: 20250712
